FAERS Safety Report 10038602 (Version 1)
Quarter: 2014Q1

REPORT INFORMATION
  Report Type: Spontaneous
  Country: US (occurrence: None)
  Receive Date: 20140306
  Receipt Date: 20140306
  Transmission Date: 20141002
  Serious: Yes (Life-Threatening, Hospitalization)
  Sender: FDA-Public Use
  Company Number: 163-21880-13070070

PATIENT
  Age: 72 Year
  Sex: Female

DRUGS (1)
  1. REVLIMID (LENALIDOMIDE) (10 MILLIGRAM CAPSULES) [Suspect]
     Indication: 5Q MINUS SYNDROME
     Dosage: 10MG, 21 IN 28 D , PO
     Route: 048
     Dates: start: 20130531, end: 20130610

REACTIONS (2)
  - Myelodysplastic syndrome [None]
  - Disease progression [None]
